FAERS Safety Report 7795121-X (Version None)
Quarter: 2011Q3

REPORT INFORMATION
  Report Type: 
  Country: None (occurrence: None)
  Receive Date: 20110930
  Receipt Date: 20110916
  Transmission Date: 20111222
  Serious: Yes (Life-Threatening)
  Sender: FDA-Public Use
  Company Number: FK201102003

PATIENT
  Age: 77 Year
  Sex: Female
  Weight: 73 kg

DRUGS (4)
  1. BIBF 1120 (INVESTIGATIONAL DRUG) ( ) [Suspect]
     Indication: OVARIAN CANCER
     Dosage: ORAL
     Route: 048
     Dates: start: 20101204, end: 20110108
  2. BIBF 1120 (INVESTIGATIONAL DRUG) ( ) [Suspect]
     Indication: OVARIAN CANCER
     Dosage: ORAL
     Route: 048
     Dates: start: 20110205, end: 20110311
  3. PACLITAXEL [Suspect]
     Indication: OVARIAN CANCER
     Dosage: INTRAVENOUS
     Route: 042
     Dates: start: 20110228, end: 20110228
  4. CARBOPLATIN [Suspect]
     Indication: OVARIAN CANCER
     Dosage: INTRAVENOUS
     Route: 042
     Dates: start: 20110228, end: 20110228

REACTIONS (10)
  - ANAEMIA [None]
  - BLOOD CREATININE INCREASED [None]
  - FATIGUE [None]
  - PHLEBITIS [None]
  - DEHYDRATION [None]
  - URINARY TRACT INFECTION [None]
  - BLOOD UREA INCREASED [None]
  - PULMONARY EMBOLISM [None]
  - FIBRIN D DIMER INCREASED [None]
  - DYSPNOEA [None]
